FAERS Safety Report 7576165-X (Version None)
Quarter: 2011Q2

REPORT INFORMATION
  Report Type: 
  Country: None (occurrence: None)
  Receive Date: 20110623
  Receipt Date: 20110623
  Transmission Date: 20111010
  Serious: Yes (Other)
  Sender: FDA-Public Use
  Company Number: None

PATIENT
  Sex: Female

DRUGS (1)
  1. SANDOSTATIN [Suspect]
     Indication: CROHN'S DISEASE
     Dosage: SANDOSTATIN 100MG/ML DAILY SQ
     Route: 058
     Dates: start: 20110521

REACTIONS (1)
  - INTESTINAL OBSTRUCTION [None]
